FAERS Safety Report 5474679-X (Version None)
Quarter: 2007Q3

REPORT INFORMATION
  Report Type: 
  Country: None (occurrence: None)
  Receive Date: 20070928
  Receipt Date: 20070913
  Transmission Date: 20080115
  Serious: Yes (Hospitalization)
  Sender: FDA-Public Use
  Company Number: TNZCA200700098

PATIENT
  Sex: Male

DRUGS (1)
  1. INNOHEP (TINZAPARIN SODIUM INJECTION) (TINZAPARIN SODIUM INJECTION) [Suspect]
     Dosage: (20000 IU), SUBCUTANEOUS
     Route: 058
     Dates: start: 20070101, end: 20070101

REACTIONS (3)
  - ACCIDENTAL OVERDOSE [None]
  - BLOOD POTASSIUM INCREASED [None]
  - BLOOD SODIUM DECREASED [None]
